FAERS Safety Report 5804792-6 (Version None)
Quarter: 2008Q3

REPORT INFORMATION
  Report Type: 
  Country: None (occurrence: None)
  Receive Date: 20080709
  Receipt Date: 20080703
  Transmission Date: 20090109
  Serious: Yes (Other)
  Sender: FDA-Public Use
  Company Number: IE-AVENTIS-200815569GDDC

PATIENT
  Age: 38 Year
  Sex: Female

DRUGS (2)
  1. FLAGYL [Suspect]
     Indication: SINUSITIS
     Dosage: DOSE: TID X 7 DAYS
     Dates: start: 20080418, end: 20080422
  2. AUGMENTIN '125' [Concomitant]
     Route: 048
     Dates: start: 20080415, end: 20080422

REACTIONS (3)
  - DYSGEUSIA [None]
  - PARAESTHESIA ORAL [None]
  - RASH [None]
